FAERS Safety Report 6558232-2 (Version None)
Quarter: 2010Q1

REPORT INFORMATION
  Report Type: 
  Country: None (occurrence: None)
  Receive Date: 20100126
  Receipt Date: 20100113
  Transmission Date: 20100710
  Serious: Yes (Other)
  Sender: FDA-Public Use
  Company Number: ALL1-2010-00178

PATIENT
  Age: 22 Year
  Sex: Female
  Weight: 56.7 kg

DRUGS (2)
  1. LIALDA [Suspect]
     Indication: COLITIS
     Dosage: 4.8 G, 1X/DAY;QD, ORAL
     Route: 048
     Dates: start: 20080301
  2. URSODIOL (URSODEOXYCHOLIC ACID) TABLET [Concomitant]

REACTIONS (6)
  - APHONIA [None]
  - ARTHRALGIA [None]
  - CHOLANGITIS SCLEROSING [None]
  - LARYNGITIS [None]
  - MIGRAINE [None]
  - MYALGIA [None]
